FAERS Safety Report 19220610 (Version 1)
Quarter: 2021Q2

REPORT INFORMATION
  Report Type: Spontaneous
  Country: US (occurrence: US)
  Receive Date: 20210506
  Receipt Date: 20210506
  Transmission Date: 20210717
  Serious: Yes (Other)
  Sender: FDA-Public Use
  Company Number: US-SA-2016SA173675

PATIENT
  Age: 62 Year
  Sex: Male

DRUGS (2)
  1. CAPRELSA [Suspect]
     Active Substance: VANDETANIB
     Indication: THYROID CANCER
     Dosage: 300 MG,QD
     Route: 048
     Dates: start: 20160831
  2. CAPRELSA [Suspect]
     Active Substance: VANDETANIB
     Dosage: 200 MG,QD
     Route: 048

REACTIONS (13)
  - Epistaxis [Recovering/Resolving]
  - Acne [Unknown]
  - Malignant neoplasm progression [Unknown]
  - Rash [Recovering/Resolving]
  - Myalgia [Unknown]
  - Skin fissures [Unknown]
  - Blood thyroid stimulating hormone increased [Unknown]
  - Dry skin [Unknown]
  - Asthenia [Unknown]
  - Arthralgia [Unknown]
  - Blood calcitonin increased [Unknown]
  - Fatigue [Unknown]
  - Hepatic pain [Unknown]

NARRATIVE: CASE EVENT DATE: 201609
